FAERS Safety Report 11291874 (Version 3)
Quarter: 2015Q3

REPORT INFORMATION
  Report Type: Spontaneous
  Country: US (occurrence: US)
  Receive Date: 20150722
  Receipt Date: 20150901
  Transmission Date: 20151125
  Serious: Yes (Other)
  Sender: FDA-Public Use
  Company Number: US-PFIZER INC-2015240337

PATIENT
  Age: 66 Year
  Sex: Female
  Weight: 82 kg

DRUGS (1)
  1. LATANOPROST. [Suspect]
     Active Substance: LATANOPROST
     Indication: GLAUCOMA
     Dosage: ONE DROP AT EACH EYE, AT NIGHT
     Route: 047
     Dates: end: 20150713

REACTIONS (4)
  - Foreign body sensation in eyes [Recovered/Resolved]
  - Eye infection [Recovered/Resolved]
  - Conjunctivitis [Recovered/Resolved]
  - Dry eye [Recovered/Resolved]
